FAERS Safety Report 22221129 (Version 1)
Quarter: 2023Q2

REPORT INFORMATION
  Report Type: Spontaneous
  Country: BE (occurrence: BE)
  Receive Date: 20230418
  Receipt Date: 20230418
  Transmission Date: 20230722
  Serious: Yes (Hospitalization, Other)
  Sender: FDA-Public Use
  Company Number: None

PATIENT
  Sex: Male

DRUGS (3)
  1. IMATINIB [Suspect]
     Active Substance: IMATINIB
     Indication: Gastrointestinal stromal tumour
     Dosage: 400 MG, QD (1DD)
     Dates: start: 20221115
  2. IMATINIB [Suspect]
     Active Substance: IMATINIB
     Dosage: 800 MG
     Dates: start: 20230117, end: 20230125
  3. SINTROM [Concomitant]
     Active Substance: ACENOCOUMAROL
     Indication: Product used for unknown indication
     Dosage: UNK
     Dates: start: 202205

REACTIONS (4)
  - Muscle spasms [Recovering/Resolving]
  - Muscle haemorrhage [Recovering/Resolving]
  - Metastases to pelvis [Unknown]
  - Extraskeletal ossification [Recovering/Resolving]

NARRATIVE: CASE EVENT DATE: 20221115
